FAERS Safety Report 12946524 (Version 2)
Quarter: 2016Q4

REPORT INFORMATION
  Report Type: Spontaneous
  Country: JP (occurrence: JP)
  Receive Date: 20161116
  Receipt Date: 20161125
  Transmission Date: 20170207
  Serious: Yes (Other)
  Sender: FDA-Public Use
  Company Number: JP-ROCHE-1854093

PATIENT
  Age: 54 Year
  Sex: Male

DRUGS (3)
  1. LUCENTIS [Suspect]
     Active Substance: RANIBIZUMAB
     Route: 031
  2. AFLIBERCEPT [Concomitant]
     Active Substance: AFLIBERCEPT
  3. LUCENTIS [Suspect]
     Active Substance: RANIBIZUMAB
     Indication: DETACHMENT OF RETINAL PIGMENT EPITHELIUM
     Dosage: 0.05 ML, UNK
     Route: 031

REACTIONS (5)
  - Detachment of retinal pigment epithelium [Unknown]
  - Drug ineffective [Unknown]
  - Product use issue [Unknown]
  - Visual acuity reduced [Unknown]
  - Retinal detachment [Unknown]
